FAERS Safety Report 13665592 (Version 2)
Quarter: 2018Q2

REPORT INFORMATION
  Report Type: Report from Study
  Country: BR (occurrence: BR)
  Receive Date: 20170619
  Receipt Date: 20180523
  Transmission Date: 20180711
  Serious: Yes (Other)
  Sender: FDA-Public Use
  Company Number: PHHY2017BR089680

PATIENT
  Sex: Female
  Weight: 65 kg

DRUGS (2)
  1. ACLASTA [Suspect]
     Active Substance: ZOLEDRONIC ACID
     Indication: OSTEOARTHRITIS
     Dosage: 1 DF (5MG/100ML), Q12MO
     Route: 042
     Dates: start: 201709, end: 201709
  2. ACLASTA [Suspect]
     Active Substance: ZOLEDRONIC ACID
     Indication: OSTEOPOROSIS
     Dosage: 1 DF (5MG/100ML), Q12MO
     Route: 042

REACTIONS (4)
  - Bone pain [Recovered/Resolved]
  - Gait inability [Unknown]
  - Weight increased [Unknown]
  - Bone disorder [Not Recovered/Not Resolved]
